FAERS Safety Report 6434273-0 (Version None)
Quarter: 2009Q4

REPORT INFORMATION
  Report Type: 
  Country: None (occurrence: None)
  Receive Date: 20091109
  Receipt Date: 20091109
  Transmission Date: 20100525
  Serious: No
  Sender: FDA-Public Use
  Company Number: None

PATIENT
  Age: 28 Year
  Sex: Female

DRUGS (3)
  1. PREDNISOLONE ACETATE [Suspect]
     Indication: GLAUCOMA
     Dosage: ONE GITS OU TID
     Dates: start: 20080929, end: 20090527
  2. XANAX [Concomitant]
  3. AMBIEN [Concomitant]

REACTIONS (3)
  - CORNEAL DISORDER [None]
  - DRUG INEFFECTIVE [None]
  - PRODUCT SUBSTITUTION ISSUE [None]
